FAERS Safety Report 6704169-5 (Version None)
Quarter: 2010Q2

REPORT INFORMATION
  Report Type: 
  Country: None (occurrence: None)
  Receive Date: 20100423
  Receipt Date: 20100219
  Transmission Date: 20101027
  Serious: No
  Sender: FDA-Public Use
  Company Number: ALL1-2010-00972

PATIENT
  Age: 41 Year
  Sex: Female
  Weight: 99.8 kg

DRUGS (3)
  1. VYVANSE [Suspect]
     Indication: ATTENTION DEFICIT/HYPERACTIVITY DISORDER
     Dosage: 70  MG, 1X/DAY:QD, ORAL
     Route: 048
     Dates: start: 20091113
  2. RISPERDAL [Concomitant]
  3. COGENTIN [Concomitant]

REACTIONS (4)
  - DRUG INEFFECTIVE [None]
  - THINKING ABNORMAL [None]
  - WEIGHT DECREASED [None]
  - WEIGHT INCREASED [None]
